FAERS Safety Report 9220905 (Version 1)
Quarter: 2013Q2

REPORT INFORMATION
  Report Type: Spontaneous
  Country: DE (occurrence: DE)
  Receive Date: 20130409
  Receipt Date: 20130409
  Transmission Date: 20140414
  Serious: Yes (Life-Threatening, Hospitalization)
  Sender: FDA-Public Use
  Company Number: DE-ABBOTT-02P-062-0196043-00

PATIENT
  Age: 59 Year
  Sex: Female
  Weight: 62 kg

DRUGS (7)
  1. KALETRA [Suspect]
     Indication: PROPHYLAXIS
     Dosage: 400/100 MG
     Route: 048
     Dates: start: 20020321, end: 20020322
  2. FELODIPINE [Interacting]
     Indication: HYPERTENSION
     Dates: end: 20020322
  3. COMBIVIR [Suspect]
     Indication: PROPHYLAXIS
     Dosage: 300/150 MG
     Route: 048
     Dates: start: 20020321, end: 20020322
  4. ATENOLOL [Concomitant]
     Indication: HYPERTENSION
     Route: 048
     Dates: end: 20020322
  5. RAMIPRIL [Concomitant]
     Indication: HYPERTENSION
     Route: 048
     Dates: end: 20020322
  6. INSULIN [Concomitant]
     Indication: DIABETES MELLITUS
     Route: 048
  7. SORTIS [Concomitant]
     Indication: PRODUCT USED FOR UNKNOWN INDICATION

REACTIONS (18)
  - Haemodynamic instability [Recovering/Resolving]
  - Multi-organ failure [Recovered/Resolved]
  - Bradycardia [Recovering/Resolving]
  - Somnolence [Unknown]
  - Dehydration [Unknown]
  - Nausea [Unknown]
  - Disturbance in attention [Not Recovered/Not Resolved]
  - Glucose urine present [Unknown]
  - Anuria [Unknown]
  - Blood glucose abnormal [Unknown]
  - Malaise [Recovering/Resolving]
  - Dizziness [Recovering/Resolving]
  - Asthenia [Recovering/Resolving]
  - Drug interaction [Unknown]
  - Cardiac murmur [Unknown]
  - Rhonchi [Recovered/Resolved]
  - Vertigo [Not Recovered/Not Resolved]
  - Cognitive disorder [Not Recovered/Not Resolved]
